FAERS Safety Report 18971700 (Version 2)
Quarter: 2021Q1

REPORT INFORMATION
  Report Type: Spontaneous
  Country: FR (occurrence: FR)
  Receive Date: 20210304
  Receipt Date: 20210313
  Transmission Date: 20210420
  Serious: Yes (Hospitalization, Other)
  Sender: FDA-Public Use
  Company Number: FR-ABBVIE-21K-056-3792076-00

PATIENT

DRUGS (6)
  1. LITHIUM CARBONATE. [Concomitant]
     Active Substance: LITHIUM CARBONATE
     Indication: BIPOLAR DISORDER
     Dosage: 400 MG, QD (EVERY 1 DAY(S))
     Route: 065
  2. DIHYDROERGOTAMINE [Interacting]
     Active Substance: DIHYDROERGOTAMINE
     Indication: ORTHOSTATIC HYPOTENSION
     Dosage: 5 MG, QD
     Route: 065
  3. LAMIVUDINE. [Concomitant]
     Active Substance: LAMIVUDINE
     Indication: PROPHYLAXIS AGAINST HIV INFECTION
     Dosage: 150 MG, BID (EVERY 12 HOUR(S))
     Route: 065
  4. ZIDOVUDINE. [Concomitant]
     Active Substance: ZIDOVUDINE
     Indication: PROPHYLAXIS AGAINST HIV INFECTION
     Dosage: 300 MG, BID (EVERY 12 HOUR(S))
     Route: 065
  5. QUETIAPINE FUMARATE. [Concomitant]
     Active Substance: QUETIAPINE FUMARATE
     Indication: BIPOLAR DISORDER
     Dosage: 50 MG, QD ( EVERY 1 DAY(S))
     Route: 065
  6. LOPINAVIR/RITONAVIR [Suspect]
     Active Substance: LOPINAVIR\RITONAVIR
     Indication: PROPHYLAXIS AGAINST HIV INFECTION
     Dosage: 1 DOSAGE FORM, BID; LOPINAVIR 200 MG, RITONAVIR 50 MG
     Route: 048

REACTIONS (10)
  - Rhabdomyolysis [Recovered/Resolved]
  - Contraindicated product administered [Unknown]
  - Arterial spasm [Recovered/Resolved]
  - Compartment syndrome [Recovered/Resolved]
  - Drug interaction [Recovered/Resolved]
  - Vasospasm [Recovered/Resolved]
  - Ergot poisoning [Recovered/Resolved]
  - Off label use [Unknown]
  - Peripheral ischaemia [Recovered/Resolved]
  - Overdose [Recovered/Resolved]
